FAERS Safety Report 5874739-5 (Version None)
Quarter: 2008Q3

REPORT INFORMATION
  Report Type: 
  Country: None (occurrence: None)
  Receive Date: 20080909
  Receipt Date: 20080909
  Transmission Date: 20090109
  Serious: No
  Sender: FDA-Public Use
  Company Number: None

PATIENT
  Age: 44 Year
  Sex: Male
  Weight: 108.8633 kg

DRUGS (1)
  1. HEPARIN [Suspect]
     Indication: DEEP VEIN THROMBOSIS
     Dosage: IV BOLUS
     Route: 040
     Dates: start: 20071126

REACTIONS (15)
  - ADVERSE DRUG REACTION [None]
  - ARTERIAL THROMBOSIS [None]
  - ASTHENIA [None]
  - DEMYELINATION [None]
  - DRUG INEFFECTIVE [None]
  - FLUSHING [None]
  - HOT FLUSH [None]
  - MULTI-ORGAN DISORDER [None]
  - MUSCLE ATROPHY [None]
  - MUSCLE TWITCHING [None]
  - NERVE INJURY [None]
  - OEDEMA PERIPHERAL [None]
  - PAIN [None]
  - RENAL INJURY [None]
  - VEIN DISORDER [None]
